FAERS Safety Report 12544721 (Version 1)
Quarter: 2016Q3

REPORT INFORMATION
  Report Type: Report from Study
  Country: NO (occurrence: NO)
  Receive Date: 20160711
  Receipt Date: 20160711
  Transmission Date: 20161109
  Serious: Yes (Other)
  Sender: FDA-Public Use
  Company Number: NO-BAYER-2016-130071

PATIENT
  Age: 30 Year
  Sex: Female
  Weight: 53.5 kg

DRUGS (1)
  1. JAYDESS [Suspect]
     Active Substance: LEVONORGESTREL
     Dosage: 14 MCG/24HR, CONT
     Route: 015
     Dates: start: 201503

REACTIONS (6)
  - Haemorrhagic cyst [Recovered/Resolved]
  - Abdominal discomfort [None]
  - Device issue [None]
  - Device dislocation [None]
  - Pelvic pain [None]
  - Uterine tenderness [None]

NARRATIVE: CASE EVENT DATE: 20160624
